FAERS Safety Report 7347366-0 (Version None)
Quarter: 2011Q1

REPORT INFORMATION
  Report Type: 
  Country: None (occurrence: None)
  Receive Date: 20110311
  Receipt Date: 20110304
  Transmission Date: 20110831
  Serious: Yes (Other)
  Sender: FDA-Public Use
  Company Number: BR-ROCHE-763674

PATIENT
  Sex: Male

DRUGS (5)
  1. LIPLESS [Concomitant]
     Indication: BLOOD CHOLESTEROL ABNORMAL
     Dosage: DOSE-100 MG
  2. ALCOHOL [Interacting]
     Route: 065
  3. RIVOTRIL [Suspect]
     Dosage: HALF TAB IN MORNING AND HALF AT NIGHT
     Route: 065
     Dates: start: 20070101
  4. AAS [Concomitant]
     Indication: BLOOD CHOLESTEROL ABNORMAL
  5. DOXAZOSIN [Concomitant]
     Indication: PROSTATIC DISORDER
     Dosage: DRUG REPORTED AS :DUMO

REACTIONS (8)
  - ALCOHOL INTERACTION [None]
  - PALLOR [None]
  - ISCHAEMIA [None]
  - NASOPHARYNGITIS [None]
  - MEMORY IMPAIRMENT [None]
  - LOSS OF CONSCIOUSNESS [None]
  - SYNCOPE [None]
  - HYPOTENSION [None]
